FAERS Safety Report 13360184 (Version 1)
Quarter: 2017Q1

REPORT INFORMATION
  Report Type: Spontaneous
  Country: US (occurrence: US)
  Receive Date: 20170322
  Receipt Date: 20170322
  Transmission Date: 20170429
  Serious: No
  Sender: FDA-Public Use
  Company Number: US-AMNEAL PHARMACEUTICALS-2017AMN00210

PATIENT
  Sex: Female

DRUGS (1)
  1. ESTRADIOL. [Suspect]
     Active Substance: ESTRADIOL
     Dosage: UNK
     Dates: start: 201701

REACTIONS (5)
  - Product outer packaging issue [Unknown]
  - Product solubility abnormal [Unknown]
  - Product physical issue [Unknown]
  - Vulvovaginal discomfort [Unknown]
  - Condition aggravated [Unknown]
